FAERS Safety Report 11137850 (Version 1)
Quarter: 2015Q2

REPORT INFORMATION
  Report Type: Spontaneous
  Country: US (occurrence: US)
  Receive Date: 20150526
  Receipt Date: 20150526
  Transmission Date: 20150821
  Serious: No
  Sender: FDA-Public Use
  Company Number: US-MALLINCKRODT-T201501074

PATIENT
  Age: 70 Year
  Sex: Male

DRUGS (2)
  1. H.P. ACTHAR [Suspect]
     Active Substance: CORTICOTROPIN
     Indication: GLOMERULONEPHRITIS
     Dosage: 80 U, BIWEEKLY
     Route: 065
     Dates: start: 20141001, end: 20150327
  2. H.P. ACTHAR [Suspect]
     Active Substance: CORTICOTROPIN
     Dosage: 80 U, BIWEEKLY
     Route: 065
     Dates: start: 201502

REACTIONS (4)
  - Drug ineffective [Unknown]
  - Protein urine present [Unknown]
  - Weight increased [Not Recovered/Not Resolved]
  - Oedema [Not Recovered/Not Resolved]

NARRATIVE: CASE EVENT DATE: 201501
